FAERS Safety Report 4275414-3 (Version None)
Quarter: 2004Q1

REPORT INFORMATION
  Report Type: 
  Country: None (occurrence: None)
  Receive Date: 20040116
  Receipt Date: 20040105
  Transmission Date: 20041129
  Serious: Yes (Life-Threatening)
  Sender: FDA-Public Use
  Company Number: 2003-BP-06337BP

PATIENT
  Sex: Female

DRUGS (1)
  1. MEXITIL [Suspect]
     Indication: ARRHYTHMIA
     Dosage: PO
     Route: 048

REACTIONS (2)
  - CEREBROVASCULAR ACCIDENT [None]
  - LUPUS-LIKE SYNDROME [None]
